FAERS Safety Report 13046009 (Version 1)
Quarter: 2016Q4

REPORT INFORMATION
  Report Type: Spontaneous
  Country: US (occurrence: US)
  Receive Date: 20161220
  Receipt Date: 20161220
  Transmission Date: 20170207
  Serious: No
  Sender: FDA-Public Use
  Company Number: GXBR2016US003084

PATIENT
  Sex: Female

DRUGS (1)
  1. HYDROXYZINE PAMOATE CAPSULES USP [Suspect]
     Active Substance: HYDROXYZINE PAMOATE
     Indication: URTICARIA
     Dosage: 50 MG, UNK
     Route: 048

REACTIONS (2)
  - Fatigue [Not Recovered/Not Resolved]
  - Drug effect incomplete [Not Recovered/Not Resolved]
